FAERS Safety Report 7659037-1 (Version None)
Quarter: 2011Q3

REPORT INFORMATION
  Report Type: 
  Country: None (occurrence: None)
  Receive Date: 20110805
  Receipt Date: 20110729
  Transmission Date: 20111222
  Serious: Yes (Other)
  Sender: FDA-Public Use
  Company Number: US-CEPHALON-2011004020

PATIENT
  Age: 53 Year
  Sex: Female
  Weight: 62 kg

DRUGS (3)
  1. COPAXONE [Suspect]
  2. PROVIGIL [Suspect]
     Indication: FATIGUE
     Route: 048
  3. CHANTIX [Suspect]
     Dates: start: 20110401

REACTIONS (10)
  - CHILLS [None]
  - CONSTIPATION [None]
  - SKIN COSMETIC PROCEDURE [None]
  - MAMMOPLASTY [None]
  - PYREXIA [None]
  - INFLUENZA LIKE ILLNESS [None]
  - ABNORMAL DREAMS [None]
  - WEIGHT INCREASED [None]
  - SERUM FERRITIN DECREASED [None]
  - ABDOMINOPLASTY [None]
